FAERS Safety Report 16111341 (Version 3)
Quarter: 2019Q4

REPORT INFORMATION
  Report Type: Report from Study
  Country: US (occurrence: US)
  Receive Date: 20190325
  Receipt Date: 20191224
  Transmission Date: 20200122
  Serious: Yes (Hospitalization, Other)
  Sender: FDA-Public Use
  Company Number: US-ROCHE-2286565

PATIENT
  Age: 81 Year
  Sex: Male
  Weight: 67 kg

DRUGS (1)
  1. ATEZOLIZUMAB. [Suspect]
     Active Substance: ATEZOLIZUMAB
     Indication: CHOLANGIOCARCINOMA
     Dosage: LAST DOSE: 19/JUL/2018
     Route: 042
     Dates: start: 20180705

REACTIONS (4)
  - Hyponatraemia [Unknown]
  - Myocardial infarction [Unknown]
  - Troponin T increased [Unknown]
  - Infusion related reaction [Unknown]

NARRATIVE: CASE EVENT DATE: 20180719
